FAERS Safety Report 5433748-0 (Version None)
Quarter: 2007Q3

REPORT INFORMATION
  Report Type: 
  Country: None (occurrence: None)
  Receive Date: 20070831
  Receipt Date: 20070622
  Transmission Date: 20080115
  Serious: No
  Sender: FDA-Public Use
  Company Number: A0659180A

PATIENT
  Sex: Female

DRUGS (1)
  1. ALLI [Suspect]
     Dates: start: 20070619

REACTIONS (4)
  - ANXIETY [None]
  - FEELING JITTERY [None]
  - HYPOVENTILATION [None]
  - MYDRIASIS [None]
